FAERS Safety Report 8554531 (Version 3)
Quarter: 2013Q1

REPORT INFORMATION
  Report Type: Spontaneous
  Country: US (occurrence: US)
  Receive Date: 20120509
  Receipt Date: 20130115
  Transmission Date: 20140127
  Serious: No
  Sender: FDA-Public Use
  Company Number: US-PFIZER INC-2012112040

PATIENT
  Age: 38 Year
  Sex: Female
  Weight: 90.7 kg

DRUGS (4)
  1. LYRICA [Suspect]
     Indication: FIBROMYALGIA
     Dosage: 75 MG, 2X/DAY
     Dates: start: 2011
  2. LYRICA [Suspect]
     Indication: NEUROPATHY PERIPHERAL
     Dosage: 75 MG, 1X/DAY
     Dates: start: 20120504
  3. LYRICA [Suspect]
     Indication: PAIN
     Dosage: 75 MG, 3X/DAY
     Route: 048
  4. MOBIC [Concomitant]
     Indication: ARTHRITIS
     Dosage: 15 MG, 1X/DAY
     Dates: start: 2011

REACTIONS (2)
  - Intentional drug misuse [Unknown]
  - Burning sensation [Not Recovered/Not Resolved]
